FAERS Safety Report 9981204 (Version 1)
Quarter: 2014Q1

REPORT INFORMATION
  Report Type: Report from Study
  Country: CN (occurrence: CN)
  Receive Date: 20140307
  Receipt Date: 20140307
  Transmission Date: 20141002
  Serious: Yes (Other)
  Sender: FDA-Public Use
  Company Number: CN-ROCHE-1356386

PATIENT
  Sex: 0

DRUGS (4)
  1. TRASTUZUMAB [Suspect]
     Indication: HER-2 POSITIVE GASTRIC CANCER
     Dosage: LOADING DOSE
     Route: 065
  2. TRASTUZUMAB [Suspect]
     Route: 065
  3. CAPECITABINE [Suspect]
     Indication: HER-2 POSITIVE GASTRIC CANCER
     Dosage: D1-14, Q3W
     Route: 048
  4. OXALIPLATIN [Suspect]
     Indication: HER-2 POSITIVE GASTRIC CANCER
     Route: 065

REACTIONS (7)
  - Thrombocytopenia [Unknown]
  - Neutropenia [Unknown]
  - Anaemia [Unknown]
  - Leukopenia [Unknown]
  - Nausea [Unknown]
  - Vomiting [Unknown]
  - Palmar-plantar erythrodysaesthesia syndrome [Unknown]
